FAERS Safety Report 10834902 (Version 1)
Quarter: 2015Q1

REPORT INFORMATION
  Report Type: Report from Study
  Country: US (occurrence: MX)
  Receive Date: 20150219
  Receipt Date: 20150219
  Transmission Date: 20150721
  Serious: No
  Sender: FDA-Public Use
  Company Number: US-ABBVIE-14P-163-1204310-00

PATIENT
  Age: 49 Year
  Sex: Female

DRUGS (6)
  1. TOPAMAX [Concomitant]
     Active Substance: TOPIRAMATE
     Indication: MUSCLE SPASMS
     Route: 048
  2. HUMIRA [Suspect]
     Active Substance: ADALIMUMAB
     Indication: ANKYLOSING SPONDYLITIS
     Dates: start: 201401
  3. MORPHINE [Concomitant]
     Active Substance: MORPHINE
     Indication: PAIN
     Route: 048
  4. TOPAMAX [Concomitant]
     Active Substance: TOPIRAMATE
     Indication: NEURALGIA
  5. BACLOFEN. [Concomitant]
     Active Substance: BACLOFEN
     Indication: MUSCLE SPASMS
     Route: 048
  6. VITAMIN B12 [Concomitant]
     Active Substance: CYANOCOBALAMIN
     Indication: MALABSORPTION

REACTIONS (1)
  - Diarrhoea [Recovering/Resolving]

NARRATIVE: CASE EVENT DATE: 20140208
